FAERS Safety Report 5896522-7 (Version None)
Quarter: 2008Q3

REPORT INFORMATION
  Report Type: 
  Country: None (occurrence: None)
  Receive Date: 20080924
  Receipt Date: 20071106
  Transmission Date: 20090109
  Serious: Yes (Hospitalization)
  Sender: FDA-Public Use
  Company Number: US-BAYER-200712303BWH

PATIENT
  Age: 72 Year
  Sex: Male
  Weight: 91 kg

DRUGS (5)
  1. AVELOX [Suspect]
     Indication: BRONCHITIS
     Dosage: TOTAL DAILY DOSE: 400 MG  UNIT DOSE: 400 MG
     Route: 048
     Dates: start: 20070604
  2. PLAVIX [Concomitant]
     Dosage: TOTAL DAILY DOSE: 95 MG  UNIT DOSE: 95 MG
     Route: 048
  3. METOPROLOL TARTRATE [Concomitant]
     Dosage: TOTAL DAILY DOSE: 50 MG  UNIT DOSE: 25 MG
     Route: 048
  4. AMLODIPINE [Concomitant]
     Dosage: TOTAL DAILY DOSE: 10 MG  UNIT DOSE: 10 MG
     Route: 048
  5. LISINOPRIL [Concomitant]
     Dosage: AS USED: 10 MG  UNIT DOSE: 10 MG
     Route: 048

REACTIONS (10)
  - ANAPHYLACTIC SHOCK [None]
  - BLOOD PRESSURE DECREASED [None]
  - DIZZINESS [None]
  - HEART RATE DECREASED [None]
  - HYPERSENSITIVITY [None]
  - LOSS OF CONSCIOUSNESS [None]
  - MUSCULAR WEAKNESS [None]
  - PRURITUS GENERALISED [None]
  - RASH [None]
  - VISION BLURRED [None]
